FAERS Safety Report 5264912-1 (Version None)
Quarter: 2007Q1

REPORT INFORMATION
  Report Type: 
  Country: None (occurrence: None)
  Receive Date: 20061117
  Receipt Date: 20060306
  Transmission Date: 20070707
  Serious: Yes (Other)
  Sender: FDA-Public Use
  Company Number: US-JNJFOC-20050907036

PATIENT
  Age: 46 Year
  Sex: Female

DRUGS (1)
  1. LEVAQUIN [Suspect]
     Indication: URINARY TRACT INFECTION
     Dosage: 500 MG, 1 IN 24 HOUR, ORAL
     Route: 048
     Dates: start: 20050913, end: 20050913

REACTIONS (1)
  - HYPERSENSITIVITY [None]
